FAERS Safety Report 6682621-9 (Version None)
Quarter: 2010Q2

REPORT INFORMATION
  Report Type: 
  Country: None (occurrence: None)
  Receive Date: 20100415
  Receipt Date: 20100406
  Transmission Date: 20101027
  Serious: Yes (Other)
  Sender: FDA-Public Use
  Company Number: PHHY2010US21641

PATIENT
  Sex: Female

DRUGS (10)
  1. RECLAST [Suspect]
     Indication: OSTEOPOROSIS
     Dosage: UNK
     Route: 042
     Dates: start: 20100129
  2. LASIX [Concomitant]
     Indication: CARDIAC FAILURE CONGESTIVE
     Dosage: 40 MG, BID
     Route: 048
     Dates: start: 20091019
  3. LOPID [Concomitant]
     Indication: HYPERLIPIDAEMIA
     Dosage: 1/2 TABLET, QD
     Route: 048
     Dates: start: 20091019
  4. ASPIRIN [Concomitant]
     Dosage: 81 MG, QD
     Route: 048
     Dates: start: 20091019
  5. CALCIUM CARBONATE AND VITAMINE D [Concomitant]
     Indication: OSTEOPOROSIS
     Dosage: 600 MG-200 U, BID
     Route: 048
     Dates: start: 20091019
  6. COLACE [Concomitant]
     Indication: CONSTIPATION
     Dosage: 100 MG, BID
     Route: 048
     Dates: start: 20091019
  7. DULCOLAX LAXATIVE [Concomitant]
     Indication: CONSTIPATION
     Dosage: 10 MG, QD
     Route: 054
     Dates: start: 20091019
  8. MILK OF MAGNESIA TAB [Concomitant]
     Indication: CONSTIPATION
     Dosage: 30 ML, QD/PRN
     Route: 048
     Dates: start: 20091019
  9. ROBITUSSIN [Concomitant]
     Dosage: 2 TSP, PRN
     Route: 048
     Dates: start: 20091229
  10. APAP TAB [Concomitant]
     Indication: PAIN
     Dosage: 500 MG, PRN
     Route: 048
     Dates: start: 20100204

REACTIONS (2)
  - ASTHENIA [None]
  - LOSS OF CONSCIOUSNESS [None]
